FAERS Safety Report 9659690 (Version 3)
Quarter: 2013Q4

REPORT INFORMATION
  Report Type: Report from Study
  Country: AU (occurrence: AU)
  Receive Date: 20131031
  Receipt Date: 20131201
  Transmission Date: 20140711
  Serious: Yes (Hospitalization)
  Sender: FDA-Public Use
  Company Number: AU-SANOFI-AVENTIS-200510254GDDC

PATIENT
  Age: 67 Year
  Sex: Female
  Weight: 76 kg

DRUGS (6)
  1. DOCETAXEL [Suspect]
     Indication: BREAST CANCER
     Route: 042
     Dates: start: 20031003, end: 20031003
  2. DOCETAXEL [Suspect]
     Indication: BREAST CANCER
     Route: 042
     Dates: start: 20040114, end: 20040114
  3. TRASTUZUMAB [Suspect]
     Indication: BREAST CANCER
     Route: 042
     Dates: start: 20040428, end: 20040428
  4. TRASTUZUMAB [Suspect]
     Indication: BREAST CANCER
     Route: 042
  5. CARBOPLATIN [Suspect]
     Indication: BREAST CANCER
     Dates: start: 20031003, end: 20031003
  6. CARBOPLATIN [Suspect]
     Indication: BREAST CANCER
     Dates: start: 20040114, end: 20040114

REACTIONS (1)
  - Ankle fracture [Recovered/Resolved]
